FAERS Safety Report 4787596-5 (Version None)
Quarter: 2005Q4

REPORT INFORMATION
  Report Type: 
  Country: None (occurrence: None)
  Receive Date: 20051004
  Receipt Date: 20050923
  Transmission Date: 20060501
  Serious: Yes (Other)
  Sender: FDA-Public Use
  Company Number: 200513155FR

PATIENT
  Age: 13 Year
  Sex: Female

DRUGS (5)
  1. NASACORT [Suspect]
     Indication: RHINITIS
     Route: 045
     Dates: start: 20050415, end: 20050509
  2. NASACORT [Suspect]
     Indication: SINUSITIS
     Route: 045
     Dates: start: 20050415, end: 20050509
  3. SOLU-MEDROL [Concomitant]
     Route: 048
     Dates: start: 20050415, end: 20050429
  4. AUGMENTIN [Concomitant]
     Route: 048
     Dates: start: 20050415, end: 20050429
  5. DERINOX [Concomitant]
     Route: 045
     Dates: start: 20050415, end: 20050429

REACTIONS (5)
  - AREFLEXIA [None]
  - DYSPHAGIA [None]
  - GLOSSOPHARYNGEAL NERVE PARALYSIS [None]
  - PALATAL DISORDER [None]
  - SPEECH DISORDER [None]
